FAERS Safety Report 4555336-0 (Version None)
Quarter: 2004Q4

REPORT INFORMATION
  Report Type: 
  Country: None (occurrence: None)
  Receive Date: 20041217
  Receipt Date: 20040803
  Transmission Date: 20050328
  Serious: No
  Sender: FDA-Public Use
  Company Number: 2004-BP-06474BP

PATIENT
  Age: 79 Year
  Sex: Female

DRUGS (7)
  1. SPIRIVA [Suspect]
     Dosage: 36 MCG (18 MCG, BID), IH
     Route: 055
     Dates: start: 20040701, end: 20040701
  2. LOPRESSOR [Concomitant]
  3. LASIX [Concomitant]
  4. XANAX [Concomitant]
  5. PREMARIN [Concomitant]
  6. ESTRADIOL [Concomitant]
  7. ASPIRIN [Concomitant]

REACTIONS (3)
  - DYSPNOEA [None]
  - EYE IRRITATION [None]
  - EYE REDNESS [None]
